FAERS Safety Report 16776589 (Version 1)
Quarter: 2019Q3

REPORT INFORMATION
  Report Type: Report from Study
  Country: CA (occurrence: CA)
  Receive Date: 20190905
  Receipt Date: 20190905
  Transmission Date: 20191005
  Serious: Yes (Other)
  Sender: FDA-Public Use
  Company Number: CA-MYLANLABS-2019M1082889

PATIENT
  Sex: Male

DRUGS (1)
  1. EPINEPHRINE. [Suspect]
     Active Substance: EPINEPHRINE
     Indication: ARTHROPOD STING
     Dosage: UNK
     Route: 065

REACTIONS (2)
  - Needle issue [Recovered/Resolved]
  - Device failure [Recovered/Resolved]
